FAERS Safety Report 18943505 (Version 1)
Quarter: 2021Q1

REPORT INFORMATION
  Report Type: Other
  Country: IL (occurrence: IL)
  Receive Date: 20210226
  Receipt Date: 20210226
  Transmission Date: 20210420
  Serious: Yes (Other)
  Sender: FDA-Public Use
  Company Number: IL-ROCHE-2770729

PATIENT
  Age: 63 Year
  Sex: Male

DRUGS (1)
  1. ATEZOLIZUMAB. [Suspect]
     Active Substance: ATEZOLIZUMAB
     Indication: LUNG ADENOCARCINOMA
     Route: 065

REACTIONS (5)
  - Pulmonary embolism [Unknown]
  - Dyspnoea [Unknown]
  - Asthenia [Unknown]
  - Arteriosclerosis [Unknown]
  - Chest pain [Unknown]
